FAERS Safety Report 11884900 (Version 1)
Quarter: 2015Q4

REPORT INFORMATION
  Report Type: Spontaneous
  Country: US (occurrence: None)
  Receive Date: 20151231
  Receipt Date: 20151231
  Transmission Date: 20160305
  Serious: Yes (Life-Threatening)
  Sender: FDA-Public Use
  Company Number: None

PATIENT
  Age: 82 Year
  Sex: Female
  Weight: 54.43 kg

DRUGS (7)
  1. LYRICA [Concomitant]
     Active Substance: PREGABALIN
  2. CELECOXIB 200 MG [Suspect]
     Active Substance: CELECOXIB
     Indication: BACK PAIN
     Route: 048
  3. SIMVASTATIN. [Concomitant]
     Active Substance: SIMVASTATIN
  4. JANUMET [Concomitant]
     Active Substance: METFORMIN HYDROCHLORIDE\SITAGLIPTIN PHOSPHATE
  5. COLCRYS [Concomitant]
     Active Substance: COLCHICINE
  6. TELMISARTAN. [Concomitant]
     Active Substance: TELMISARTAN
  7. GLUCOSAMINE/CHONDROITIN /08437701/ [Concomitant]
     Active Substance: CHONDROITIN SULFATE (BOVINE)\GLUCOSAMINE SULFATE

REACTIONS (2)
  - Decubitus ulcer [None]
  - Pruritus [None]

NARRATIVE: CASE EVENT DATE: 20151230
